FAERS Safety Report 7175401-1 (Version None)
Quarter: 2010Q4

REPORT INFORMATION
  Report Type: 
  Country: None (occurrence: None)
  Receive Date: 20101220
  Receipt Date: 20100312
  Transmission Date: 20110411
  Serious: No
  Sender: FDA-Public Use
  Company Number: US-AMGEN-TCS399274

PATIENT

DRUGS (2)
  1. ENBREL [Suspect]
     Indication: RHEUMATOID ARTHRITIS
     Dosage: 50 MG, QWK
     Route: 058
     Dates: start: 20091211
  2. HYDROXYCHLOROQUINE [Concomitant]
     Dosage: 200 MG, QD
     Dates: start: 19900101

REACTIONS (1)
  - INJECTION SITE URTICARIA [None]
